FAERS Safety Report 13761957 (Version 1)
Quarter: 2017Q3

REPORT INFORMATION
  Report Type: Spontaneous
  Country: US (occurrence: US)
  Receive Date: 20170717
  Receipt Date: 20170717
  Transmission Date: 20171127
  Serious: No
  Sender: FDA-Public Use
  Company Number: None

PATIENT
  Age: 63 Year
  Sex: Male

DRUGS (9)
  1. XALATAN [Concomitant]
     Active Substance: LATANOPROST
  2. SIMVASTATIN. [Concomitant]
     Active Substance: SIMVASTATIN
  3. IRON [Concomitant]
     Active Substance: IRON
  4. PANTOPRAZOLE [Concomitant]
     Active Substance: PANTOPRAZOLE
  5. VITAMIN D [Concomitant]
     Active Substance: CHOLECALCIFEROL
  6. METFORMIN [Concomitant]
     Active Substance: METFORMIN HYDROCHLORIDE
  7. OCALIVA [Suspect]
     Active Substance: OBETICHOLIC ACID
     Indication: BILIARY CIRRHOSIS PRIMARY
     Route: 048
  8. CARAFATE [Concomitant]
     Active Substance: SUCRALFATE
  9. URSODIOL. [Concomitant]
     Active Substance: URSODIOL

REACTIONS (1)
  - Fatigue [None]

NARRATIVE: CASE EVENT DATE: 201706
